FAERS Safety Report 7394925-5 (Version None)
Quarter: 2011Q2

REPORT INFORMATION
  Report Type: 
  Country: None (occurrence: None)
  Receive Date: 20110405
  Receipt Date: 20110331
  Transmission Date: 20111010
  Serious: Yes (Other)
  Sender: FDA-Public Use
  Company Number: B0710495A

PATIENT
  Sex: Female
  Weight: 59 kg

DRUGS (3)
  1. TAXOTERE [Suspect]
     Indication: BREAST CANCER
     Dosage: 129MG CUMULATIVE DOSE
     Route: 042
     Dates: start: 20110210
  2. LAPATINIB [Suspect]
     Indication: BREAST CANCER
     Dosage: 17500MG CUMULATIVE DOSE
     Route: 048
     Dates: start: 20110210
  3. PROCTOLOG [Concomitant]
     Dates: start: 20110227

REACTIONS (1)
  - NEUTROPENIA [None]
